FAERS Safety Report 12437380 (Version 1)
Quarter: 2016Q2

REPORT INFORMATION
  Report Type: Spontaneous
  Country: US (occurrence: None)
  Receive Date: 20160603
  Receipt Date: 20160603
  Transmission Date: 20160815
  Serious: Yes (Other)
  Sender: FDA-Public Use
  Company Number: None

PATIENT
  Age: 54 Year
  Sex: Female
  Weight: 52.2 kg

DRUGS (1)
  1. BENZOCAINE. [Suspect]
     Active Substance: BENZOCAINE
     Dates: start: 20160504, end: 20160504

REACTIONS (8)
  - Methaemoglobinaemia [None]
  - Peripheral coldness [None]
  - Pallor [None]
  - PO2 decreased [None]
  - Nail discolouration [None]
  - Cyanosis [None]
  - Lip discolouration [None]
  - Breath sounds abnormal [None]

NARRATIVE: CASE EVENT DATE: 20160504
